FAERS Safety Report 6802754-3 (Version None)
Quarter: 2010Q2

REPORT INFORMATION
  Report Type: 
  Country: None (occurrence: None)
  Receive Date: 20100628
  Receipt Date: 20100623
  Transmission Date: 20101027
  Serious: Yes (Other)
  Sender: FDA-Public Use
  Company Number: US-BRISTOL-MYERS SQUIBB COMPANY-15100464

PATIENT
  Age: 38 Year
  Sex: Female
  Weight: 91 kg

DRUGS (7)
  1. ABILIFY [Suspect]
     Indication: DEPRESSION
     Route: 048
     Dates: start: 20091019
  2. ABILIFY [Suspect]
     Indication: ROAD TRAFFIC ACCIDENT
     Route: 048
     Dates: start: 20091019
  3. ABILIFY [Suspect]
     Indication: COMA
     Route: 048
     Dates: start: 20091019
  4. ABILIFY [Suspect]
     Indication: AFFECTIVE DISORDER
     Route: 048
     Dates: start: 20091019
  5. SERTRALINE HCL [Concomitant]
     Route: 048
  6. LORATADINE [Concomitant]
     Route: 048
     Dates: start: 20090101
  7. HYDROCHLOROTHIAZIDE [Concomitant]
     Route: 048
     Dates: start: 20090101

REACTIONS (1)
  - DYSARTHRIA [None]
